FAERS Safety Report 19819104 (Version 2)
Quarter: 2021Q3

REPORT INFORMATION
  Report Type: Spontaneous
  Country: US (occurrence: US)
  Receive Date: 20210913
  Receipt Date: 20210927
  Transmission Date: 20211014
  Serious: Yes (Other)
  Sender: FDA-Public Use
  Company Number: US-009507513-2109USA001914

PATIENT
  Sex: Female
  Weight: 48.53 kg

DRUGS (4)
  1. PRINIVIL [Suspect]
     Active Substance: LISINOPRIL
     Indication: HYPERTENSION
     Dosage: 20 MILLIGRAM, ONCE A DAY
     Route: 048
     Dates: start: 1991
  2. MELOXICAM. [Concomitant]
     Active Substance: MELOXICAM
     Dosage: I TAKE OCCASIONALLY MELOXICAM 15 MG BUT IT^S NOT AN ONGOING
  3. LORAZEPAM. [Concomitant]
     Active Substance: LORAZEPAM
     Dosage: 1 MG, ABOUT I SAYS IT WAS 8 HOURS BUT I DON^T TAKE IT AT ALL
  4. VERAPAMIL [Suspect]
     Active Substance: VERAPAMIL HYDROCHLORIDE
     Indication: HYPERTENSION
     Dosage: UNK

REACTIONS (5)
  - Cough [Not Recovered/Not Resolved]
  - Asthenia [Unknown]
  - Lung carcinoma cell type unspecified stage IV [Not Recovered/Not Resolved]
  - Bronchitis [Unknown]
  - Blood pressure increased [Unknown]

NARRATIVE: CASE EVENT DATE: 1991
